FAERS Safety Report 15192440 (Version 1)
Quarter: 2018Q3

REPORT INFORMATION
  Report Type: Spontaneous
  Country: US (occurrence: US)
  Receive Date: 20180724
  Receipt Date: 20180724
  Transmission Date: 20181010
  Serious: No
  Sender: FDA-Public Use
  Company Number: US-TEVA-2018-US-930831

PATIENT
  Sex: Female

DRUGS (1)
  1. PROVIGIL [Suspect]
     Active Substance: MODAFINIL
     Route: 065

REACTIONS (6)
  - Depression [Unknown]
  - Headache [Unknown]
  - Pruritus [Unknown]
  - Back pain [Unknown]
  - Fatigue [Unknown]
  - Incorrect dose administered [Unknown]
